FAERS Safety Report 15221312 (Version 2)
Quarter: 2018Q3

REPORT INFORMATION
  Report Type: Spontaneous
  Country: GB (occurrence: GB)
  Receive Date: 20180731
  Receipt Date: 20180904
  Transmission Date: 20181010
  Serious: Yes (Other)
  Sender: FDA-Public Use
  Company Number: GB-PFIZER INC-2018298664

PATIENT
  Age: 54 Year
  Sex: Male
  Weight: 74 kg

DRUGS (3)
  1. MIRTAZAPINE. [Concomitant]
     Active Substance: MIRTAZAPINE
     Indication: DEPRESSION
     Dosage: 45 MG, DAILY (AT NIGHT/ NOCTE)
     Route: 048
  2. HYPOVASE [Suspect]
     Active Substance: PRAZOSIN HYDROCHLORIDE
     Indication: POST-TRAUMATIC STRESS DISORDER
     Dosage: 3.5 MG, DAILY (AT NIGHT)
     Route: 048
  3. HYPOVASE [Suspect]
     Active Substance: PRAZOSIN HYDROCHLORIDE
     Dosage: 2 MG, UNK
     Route: 048
     Dates: end: 20180801

REACTIONS (4)
  - Hypothermia [Recovered/Resolved]
  - Cyanosis [Recovered/Resolved]
  - Hypertonia [Unknown]
  - Drug effective for unapproved indication [Unknown]

NARRATIVE: CASE EVENT DATE: 20180718
